FAERS Safety Report 4073160 (Version 4)
Quarter: 2020Q3

REPORT INFORMATION
  Report Type: Report from Study
  Country: BE (occurrence: BE)
  Receive Date: 20040115
  Receipt Date: 20050308
  Transmission Date: 20201104
  Serious: Yes (Hospitalization)
  Sender: FDA-Public Use
  Company Number: BE-JNJFOC-20040101112

PATIENT
  Age: 51 Year
  Sex: Female

DRUGS (17)
  1. INFLIXIMAB [Suspect]
     Active Substance: INFLIXIMAB
     Route: 042
  2. INFLIXIMAB [Suspect]
     Active Substance: INFLIXIMAB
     Route: 042
  3. METHOTREXATE. [Concomitant]
     Active Substance: METHOTREXATE
     Route: 049
  4. FOLIC ACID. [Concomitant]
     Active Substance: FOLIC ACID
     Route: 049
  5. NAPROSYN [Concomitant]
     Active Substance: NAPROXEN
     Dosage: FOR 1 WEEK
     Route: 049
  6. OMEPRAZOLE. [Concomitant]
     Active Substance: OMEPRAZOLE
     Indication: GASTROINTESTINAL DISORDER THERAPY
     Route: 049
  7. INFLIXIMAB [Suspect]
     Active Substance: INFLIXIMAB
     Route: 042
  8. INFLIXIMAB [Suspect]
     Active Substance: INFLIXIMAB
     Route: 042
  9. INFLIXIMAB [Suspect]
     Active Substance: INFLIXIMAB
     Route: 042
  10. GYNO?KENEZOL [Concomitant]
     Route: 054
     Dates: start: 20031104, end: 20031106
  11. TOVANIC [Concomitant]
     Route: 049
     Dates: start: 20031104, end: 20031113
  12. PIROXICAM. [Concomitant]
     Active Substance: PIROXICAM
     Route: 049
     Dates: start: 1990, end: 20031229
  13. DIFLUCAN [Concomitant]
     Active Substance: FLUCONAZOLE
     Route: 049
     Dates: start: 20031104, end: 20031113
  14. INFLIXIMAB [Suspect]
     Active Substance: INFLIXIMAB
     Route: 042
  15. INFLIXIMAB [Suspect]
     Active Substance: INFLIXIMAB
     Route: 042
  16. FELDENE DISPIRSOL [Concomitant]
     Route: 049
     Dates: start: 1990, end: 20031229
  17. DEFALGAN [Concomitant]
     Route: 049

REACTIONS (5)
  - Psoriatic arthropathy [Recovered/Resolved]
  - Drug ineffective [None]
  - Skin disorder [None]
  - Arthritis [None]
  - Infection [None]

NARRATIVE: CASE EVENT DATE: 20040106
